FAERS Safety Report 21806379 (Version 1)
Quarter: 2023Q1

REPORT INFORMATION
  Report Type: Report from Study
  Country: SD (occurrence: SD)
  Receive Date: 20230102
  Receipt Date: 20230102
  Transmission Date: 20230418
  Serious: Yes (Hospitalization, Other)
  Sender: FDA-Public Use
  Company Number: SD-002147023-NVSC2022SD293353

PATIENT
  Sex: Male

DRUGS (4)
  1. TASIGNA [Suspect]
     Active Substance: NILOTINIB
     Indication: Chronic myeloid leukaemia
     Dosage: 800 MG, QD, (4 CAPS PER DAY)
     Route: 048
     Dates: start: 2020
  2. TASIGNA [Suspect]
     Active Substance: NILOTINIB
     Dosage: 400 MG, QD, (2 CAPS PER DAY)
     Route: 048
     Dates: end: 202208
  3. AFTAMED [Concomitant]
     Indication: Ulcer
     Dosage: UNK, PRN
     Route: 065
     Dates: start: 2021
  4. VITAMIN C [Concomitant]
     Active Substance: ASCORBIC ACID
     Indication: Prophylaxis
     Dosage: 1 DOSAGE FORM, QD
     Route: 065
     Dates: start: 202208

REACTIONS (7)
  - Platelet count decreased [Recovered/Resolved]
  - Haemoglobin decreased [Recovered/Resolved]
  - Fatigue [Recovered/Resolved]
  - Lip ulceration [Recovered/Resolved]
  - Gingival ulceration [Recovered/Resolved]
  - Lymphocyte count increased [Recovering/Resolving]
  - Product availability issue [Not Recovered/Not Resolved]

NARRATIVE: CASE EVENT DATE: 20210101
